FAERS Safety Report 13352347 (Version 1)
Quarter: 2017Q1

REPORT INFORMATION
  Report Type: Spontaneous
  Country: US (occurrence: US)
  Receive Date: 20170320
  Receipt Date: 20170320
  Transmission Date: 20170429
  Serious: No
  Sender: FDA-Public Use
  Company Number: US-SA-2017SA023140

PATIENT
  Age: 52 Year
  Sex: Female

DRUGS (1)
  1. NASACORT ALLERGY 24HR [Suspect]
     Active Substance: TRIAMCINOLONE ACETONIDE
     Indication: HYPERSENSITIVITY
     Dosage: SHE USED ONE DAY ONLY. SHE WAS NOT SURE OF THE DOSE SHE USED, 1-2 SPRAYS IN EACH NOSTRIL SHE THOUGHT
     Route: 065
     Dates: start: 20170204, end: 20170204

REACTIONS (1)
  - Blood glucose increased [Recovering/Resolving]
